FAERS Safety Report 9046631 (Version 2)
Quarter: 2013Q1

REPORT INFORMATION
  Report Type: Spontaneous
  Country: US (occurrence: US)
  Receive Date: 20130204
  Receipt Date: 20130327
  Transmission Date: 20140127
  Serious: Yes (Hospitalization)
  Sender: FDA-Public Use
  Company Number: US-BIOGENIDEC-2013BI009433

PATIENT
  Sex: Female

DRUGS (2)
  1. AVONEX [Suspect]
     Indication: MULTIPLE SCLEROSIS
     Route: 030
     Dates: start: 20010330
  2. MEDICATIONS (NOS) [Concomitant]
     Indication: CONSTIPATION

REACTIONS (10)
  - Bunion [Not Recovered/Not Resolved]
  - Varicose vein [Recovered/Resolved]
  - Tooth fracture [Recovered/Resolved]
  - Tooth infection [Recovered/Resolved]
  - Pulmonary congestion [Recovered/Resolved]
  - Hypertension [Not Recovered/Not Resolved]
  - Back pain [Not Recovered/Not Resolved]
  - Constipation [Recovered/Resolved]
  - Gastrooesophageal reflux disease [Not Recovered/Not Resolved]
  - Nasal congestion [Recovered/Resolved]
